FAERS Safety Report 18465520 (Version 1)
Quarter: 2020Q4

REPORT INFORMATION
  Report Type: Spontaneous
  Country: US (occurrence: US)
  Receive Date: 20201105
  Receipt Date: 20201105
  Transmission Date: 20210114
  Serious: Yes (Other)
  Sender: FDA-Public Use
  Company Number: US-SUN PHARMACEUTICAL INDUSTRIES LTD-2020R1-266444

PATIENT
  Age: 28 Year
  Sex: Female

DRUGS (1)
  1. METFORMIN [Suspect]
     Active Substance: METFORMIN HYDROCHLORIDE
     Indication: PRODUCT USED FOR UNKNOWN INDICATION
     Dosage: UNK
     Route: 065

REACTIONS (12)
  - Distributive shock [Unknown]
  - Mental status changes [Unknown]
  - Rhabdomyolysis [Unknown]
  - Respiratory failure [Unknown]
  - Abdominal compartment syndrome [Unknown]
  - Renal failure [Unknown]
  - Drug level increased [Unknown]
  - Metabolic acidosis [Recovered/Resolved]
  - Intentional overdose [Unknown]
  - Acute respiratory distress syndrome [Not Recovered/Not Resolved]
  - Lethargy [Unknown]
  - Unresponsive to stimuli [Unknown]
